FAERS Safety Report 8328105-3 (Version None)
Quarter: 2012Q2

REPORT INFORMATION
  Report Type: 
  Country: None (occurrence: None)
  Receive Date: 20120502
  Receipt Date: 20120424
  Transmission Date: 20120825
  Serious: Yes (Other)
  Sender: FDA-Public Use
  Company Number: PHHY2012MX036553

PATIENT
  Age: 89 Year
  Sex: Female

DRUGS (8)
  1. EXFORGE [Suspect]
     Indication: HYPERTENSION
     Dosage: 2 DF (160 MG VALS AND 5 MG AMLO), DAILY
     Dates: start: 20120201
  2. CEFUROXIME [Concomitant]
  3. SELOKEEN [Concomitant]
  4. NIMESULIDE [Concomitant]
  5. LEXOTAN [Concomitant]
  6. KETOROLAC TROMETHAMINE [Concomitant]
  7. PANTOPRAZOLE [Concomitant]
  8. NOOTROPIL [Concomitant]

REACTIONS (1)
  - FALL [None]
